FAERS Safety Report 9786458 (Version 1)
Quarter: 2013Q4

REPORT INFORMATION
  Report Type: Spontaneous
  Country: DE (occurrence: None)
  Receive Date: 20131226
  Receipt Date: 20131226
  Transmission Date: 20140711
  Serious: Yes (Death, Other)
  Sender: FDA-Public Use
  Company Number: FK201305372

PATIENT
  Age: 0 Year
  Sex: 0

DRUGS (6)
  1. PROPOFOL [Suspect]
     Indication: LAPAROSCOPY
     Route: 064
     Dates: start: 20080829, end: 20080829
  2. FENTANYL [Suspect]
     Indication: LAPAROSCOPY
     Route: 064
     Dates: start: 20080829, end: 20080829
  3. ROCURONIUM [Suspect]
     Indication: LAPAROSCOPY
     Route: 064
     Dates: start: 20080829, end: 20080829
  4. AKRINOR [Suspect]
     Indication: LAPAROSCOPY
     Dosage: INTRAVENOUS (NOT OTHERWISE)?
     Route: 042
     Dates: start: 20080829, end: 20080829
  5. METAMIZOL [Suspect]
     Indication: LAPAROSCOPY
     Dosage: INTRAVENOUS (NOT OTHERWISE)
     Route: 042
     Dates: start: 20080829, end: 20080829
  6. SALBUTAMOL [Concomitant]

REACTIONS (3)
  - Maternal drugs affecting foetus [None]
  - Anencephaly [None]
  - Abortion induced [None]
